FAERS Safety Report 15315556 (Version 1)
Quarter: 2018Q3

REPORT INFORMATION
  Report Type: Spontaneous
  Country: US (occurrence: US)
  Receive Date: 20180824
  Receipt Date: 20180824
  Transmission Date: 20181010
  Serious: Yes (Hospitalization)
  Sender: FDA-Public Use
  Company Number: US-FRESENIUS KABI-FK201808954

PATIENT
  Age: 17 Year
  Sex: Female

DRUGS (4)
  1. DOXORUBICIN (MANUFACTURER UNKNOWN) [Suspect]
     Active Substance: DOXORUBICIN
     Indication: METASTASES TO LIVER
  2. DOXORUBICIN (MANUFACTURER UNKNOWN) [Suspect]
     Active Substance: DOXORUBICIN
     Indication: SOLID PSEUDOPAPILLARY TUMOUR OF THE PANCREAS
     Route: 065
  3. SUNITINIB [Suspect]
     Active Substance: SUNITINIB
     Indication: METASTASES TO LIVER
     Route: 048
  4. SUNITINIB [Suspect]
     Active Substance: SUNITINIB
     Indication: SOLID PSEUDOPAPILLARY TUMOUR OF THE PANCREAS
     Route: 048

REACTIONS (2)
  - Streptococcal bacteraemia [Unknown]
  - Liver abscess [Recovering/Resolving]
